FAERS Safety Report 25643832 (Version 2)
Quarter: 2025Q3

REPORT INFORMATION
  Report Type: Spontaneous
  Country: US (occurrence: US)
  Receive Date: 20250805
  Receipt Date: 20250826
  Transmission Date: 20251020
  Serious: No
  Sender: ROCHE
  Company Number: US-ROCHE-10000353736

PATIENT
  Sex: Female

DRUGS (2)
  1. XOLAIR [Suspect]
     Active Substance: OMALIZUMAB
     Indication: Food allergy
     Route: 058
     Dates: start: 202408
  2. XOLAIR [Suspect]
     Active Substance: OMALIZUMAB
     Indication: Food allergy

REACTIONS (3)
  - Drug ineffective [Unknown]
  - Rhinitis allergic [Unknown]
  - Oral allergy syndrome [Unknown]
